FAERS Safety Report 6982537-4 (Version None)
Quarter: 2010Q3

REPORT INFORMATION
  Report Type: 
  Country: None (occurrence: None)
  Receive Date: 20100914
  Receipt Date: 20100302
  Transmission Date: 20110219
  Serious: Yes (Other)
  Sender: FDA-Public Use
  Company Number: US-PFIZER INC-2010029462

PATIENT
  Sex: Female
  Weight: 61.234 kg

DRUGS (2)
  1. LYRICA [Suspect]
     Indication: FIBROMYALGIA
     Dosage: 50 MG, 1X/DAY
     Dates: start: 20100101
  2. LYRICA [Suspect]
     Indication: SCIATICA
     Dosage: UNK
     Dates: start: 20100201, end: 20100101

REACTIONS (4)
  - ARTHRALGIA [None]
  - BLISTER [None]
  - RASH [None]
  - URTICARIA [None]
